FAERS Safety Report 21890313 (Version 2)
Quarter: 2023Q1

REPORT INFORMATION
  Report Type: Spontaneous
  Country: US (occurrence: US)
  Receive Date: 20230120
  Receipt Date: 20230309
  Transmission Date: 20230418
  Serious: Yes (Other)
  Sender: FDA-Public Use
  Company Number: US-PFIZER INC-PV202300011670

PATIENT
  Age: 66 Year

DRUGS (3)
  1. DEPO-ESTRADIOL [Suspect]
     Active Substance: ESTRADIOL CYPIONATE
     Indication: Fibromyalgia
     Dosage: UNK; (FIRST STARTED ME ON IT LIKE 20 SOMETHING YEARS AGO)
  2. DEPO-ESTRADIOL [Suspect]
     Active Substance: ESTRADIOL CYPIONATE
     Indication: Hormone replacement therapy
     Dosage: UNK, EVERY 3 WEEKS; (ONE AND HALF ML EVERY THREE WEEKS)
  3. DEPO-ESTRADIOL [Suspect]
     Active Substance: ESTRADIOL CYPIONATE
     Dosage: UNK (I TAKE 1ML TO 1.25ML EVERY 14 TO 20 DAYS)

REACTIONS (11)
  - Drug dependence [Unknown]
  - Mental impairment [Unknown]
  - Off label use [Unknown]
  - Insomnia [Unknown]
  - Asthenia [Unknown]
  - Dysstasia [Unknown]
  - Fatigue [Unknown]
  - Dyspnoea [Unknown]
  - Fatigue [Unknown]
  - Memory impairment [Unknown]
  - Feeling of despair [Unknown]
